FAERS Safety Report 8107019-8 (Version None)
Quarter: 2012Q1

REPORT INFORMATION
  Report Type: 
  Country: None (occurrence: None)
  Receive Date: 20120202
  Receipt Date: 20120202
  Transmission Date: 20120608
  Serious: Yes (Hospitalization)
  Sender: FDA-Public Use
  Company Number: None

PATIENT
  Age: 75 Year
  Sex: Female
  Weight: 58.967 kg

DRUGS (1)
  1. NUCYNTA [Suspect]
     Indication: PAIN IN EXTREMITY
     Dosage: 1 TABLET
     Dates: start: 20120120, end: 20120123

REACTIONS (8)
  - AMNESIA [None]
  - PYREXIA [None]
  - HALLUCINATION [None]
  - CEREBROVASCULAR ACCIDENT [None]
  - DIZZINESS [None]
  - DYSPNOEA [None]
  - PRURITUS GENERALISED [None]
  - NAUSEA [None]
